FAERS Safety Report 6896746-6 (Version None)
Quarter: 2010Q3

REPORT INFORMATION
  Report Type: 
  Country: None (occurrence: None)
  Receive Date: 20100802
  Receipt Date: 20070203
  Transmission Date: 20110219
  Serious: No
  Sender: FDA-Public Use
  Company Number: US-PFIZER INC-2007010334

PATIENT
  Sex: Female
  Weight: 54.4 kg

DRUGS (7)
  1. LYRICA [Suspect]
     Indication: NERVE INJURY
  2. LYRICA [Suspect]
  3. LOPRESSOR [Concomitant]
  4. PLAVIX [Concomitant]
  5. PLETAL [Concomitant]
  6. BENICAR [Concomitant]
  7. FOLIC ACID [Concomitant]

REACTIONS (1)
  - SKIN LESION [None]
